FAERS Safety Report 16261824 (Version 3)
Quarter: 2019Q2

REPORT INFORMATION
  Report Type: Report from Study
  Country: US (occurrence: US)
  Receive Date: 20190501
  Receipt Date: 20190612
  Transmission Date: 20190711
  Serious: Yes (Other)
  Sender: FDA-Public Use
  Company Number: US-JNJFOC-20190442258

PATIENT
  Age: 72 Year
  Sex: Male

DRUGS (15)
  1. VIAGRA [Concomitant]
     Active Substance: SILDENAFIL CITRATE
  2. CALCIUM [Concomitant]
     Active Substance: CALCIUM
  3. ZOFRAN [Concomitant]
     Active Substance: ONDANSETRON HYDROCHLORIDE
  4. PREDNISONE. [Concomitant]
     Active Substance: PREDNISONE
  5. METFORMIN [Concomitant]
     Active Substance: METFORMIN HYDROCHLORIDE
  6. TAMSULOSIN [Concomitant]
     Active Substance: TAMSULOSIN
  7. ATORVASTATIN [Concomitant]
     Active Substance: ATORVASTATIN
  8. IMBRUVICA [Suspect]
     Active Substance: IBRUTINIB
     Indication: CHRONIC LYMPHOCYTIC LEUKAEMIA
     Route: 048
     Dates: start: 20190111
  9. VESICARE [Concomitant]
     Active Substance: SOLIFENACIN SUCCINATE
  10. OLMESARTAN [Concomitant]
     Active Substance: OLMESARTAN
  11. BENADRYL [Concomitant]
     Active Substance: DIPHENHYDRAMINE HYDROCHLORIDE
  12. IMBRUVICA [Suspect]
     Active Substance: IBRUTINIB
     Indication: CHRONIC LYMPHOCYTIC LEUKAEMIA
     Route: 048
     Dates: start: 20190523, end: 2019
  13. LANTUS [Concomitant]
     Active Substance: INSULIN GLARGINE
  14. ASPIRIN. [Concomitant]
     Active Substance: ASPIRIN
  15. AMLODIPINE [Concomitant]
     Active Substance: AMLODIPINE BESYLATE

REACTIONS (7)
  - Haemoglobin decreased [Unknown]
  - White blood cell count decreased [Unknown]
  - Platelet count decreased [Unknown]
  - Incorrect dose administered [Unknown]
  - Off label use [Unknown]
  - Red blood cell count decreased [Unknown]
  - Memory impairment [Unknown]

NARRATIVE: CASE EVENT DATE: 201901
